FAERS Safety Report 7170885-7 (Version None)
Quarter: 2010Q4

REPORT INFORMATION
  Report Type: 
  Country: None (occurrence: None)
  Receive Date: 20101217
  Receipt Date: 20101208
  Transmission Date: 20110411
  Serious: Yes (Hospitalization)
  Sender: FDA-Public Use
  Company Number: US-JNJFOC-20101204667

PATIENT
  Sex: Female
  Weight: 102.06 kg

DRUGS (3)
  1. INFLIXIMAB, RECOMBINANT [Suspect]
     Indication: PSORIATIC ARTHROPATHY
     Route: 042
  2. HUMIRA [Suspect]
     Indication: PSORIATIC ARTHROPATHY
  3. ETANERCEPT [Concomitant]
     Indication: PSORIATIC ARTHROPATHY

REACTIONS (3)
  - PAIN [None]
  - SWELLING [None]
  - VOMITING [None]
